FAERS Safety Report 20466479 (Version 1)
Quarter: 2022Q1

REPORT INFORMATION
  Report Type: Spontaneous
  Country: ES (occurrence: ES)
  Receive Date: 20220213
  Receipt Date: 20220213
  Transmission Date: 20220423
  Serious: Yes (Other)
  Sender: FDA-Public Use
  Company Number: ES-AstraZeneca-2022A049778

PATIENT
  Age: 65 Year
  Sex: Female

DRUGS (2)
  1. BEVACIZUMAB [Suspect]
     Active Substance: BEVACIZUMAB
     Indication: Ovarian cancer stage III
     Route: 065
  2. OLAPARIB [Suspect]
     Active Substance: OLAPARIB
     Indication: Ovarian cancer stage III
     Route: 048

REACTIONS (1)
  - Myelodysplastic syndrome [Unknown]
